FAERS Safety Report 7256906-1 (Version None)
Quarter: 2011Q1

REPORT INFORMATION
  Report Type: 
  Country: None (occurrence: None)
  Receive Date: 20110129
  Receipt Date: 20100726
  Transmission Date: 20110831
  Serious: No
  Sender: FDA-Public Use
  Company Number: US-ABBOTT-10P-163-0659554-00

PATIENT
  Age: 29 Year
  Sex: Female

DRUGS (3)
  1. ATENOLOL [Concomitant]
     Indication: BLOOD PRESSURE
  2. HUMIRA [Suspect]
     Indication: CROHN'S DISEASE
     Dates: start: 20100612
  3. DEXILANT [Concomitant]
     Indication: ANTACID THERAPY

REACTIONS (2)
  - CONTUSION [None]
  - PAIN IN EXTREMITY [None]
